FAERS Safety Report 18928655 (Version 3)
Quarter: 2022Q1

REPORT INFORMATION
  Report Type: Spontaneous
  Country: US (occurrence: US)
  Receive Date: 20210223
  Receipt Date: 20220330
  Transmission Date: 20220423
  Serious: Yes (Other)
  Sender: FDA-Public Use
  Company Number: US-GLAXOSMITHKLINE-USCH2021GSK006461

PATIENT
  Sex: Male

DRUGS (6)
  1. PREVACID 24 HR [Suspect]
     Active Substance: LANSOPRAZOLE
     Indication: Gastrooesophageal reflux disease
     Dosage: UNK, UNK
     Route: 048
     Dates: start: 2011, end: 2017
  2. NEXIUM [Suspect]
     Active Substance: ESOMEPRAZOLE MAGNESIUM
     Indication: Gastrooesophageal reflux disease
     Dosage: UNK, UNK
     Route: 065
     Dates: start: 2011, end: 2017
  3. PREVACID [Suspect]
     Active Substance: LANSOPRAZOLE
     Indication: Gastrooesophageal reflux disease
     Dosage: UNK, UNK
     Route: 065
     Dates: start: 2011, end: 2017
  4. PRILOSEC [Suspect]
     Active Substance: OMEPRAZOLE MAGNESIUM
     Indication: Gastrooesophageal reflux disease
     Dosage: 20 MG, UNK
     Route: 065
     Dates: start: 2011, end: 2017
  5. PRILOSEC [Suspect]
     Active Substance: OMEPRAZOLE MAGNESIUM
     Indication: Gastrooesophageal reflux disease
     Dosage: UNK, UNK
     Route: 065
     Dates: start: 2011, end: 2017
  6. NEXIUM 24HR [Suspect]
     Active Substance: ESOMEPRAZOLE MAGNESIUM
     Indication: Gastrooesophageal reflux disease
     Dosage: UNK
     Route: 065
     Dates: start: 2011, end: 2017

REACTIONS (16)
  - Chronic kidney disease [Not Recovered/Not Resolved]
  - Precancerous condition [Not Recovered/Not Resolved]
  - Systemic lupus erythematosus [Unknown]
  - Inflammatory bowel disease [Unknown]
  - Erectile dysfunction [Unknown]
  - Major depression [Unknown]
  - Rheumatoid arthritis [Unknown]
  - Actinic keratosis [Unknown]
  - Joint contracture [Not Recovered/Not Resolved]
  - Neck pain [Not Recovered/Not Resolved]
  - Dermatitis [Not Recovered/Not Resolved]
  - Onychomycosis [Unknown]
  - Abdominal pain [Unknown]
  - Post-traumatic stress disorder [Unknown]
  - Pulmonary mass [Unknown]
  - Proteinuria [Unknown]
